FAERS Safety Report 16329781 (Version 1)
Quarter: 2019Q2

REPORT INFORMATION
  Report Type: Spontaneous
  Country: None (occurrence: US)
  Receive Date: 20190520
  Receipt Date: 20190520
  Transmission Date: 20190711
  Serious: No
  Sender: FDA-Public Use
  Company Number: US-JIANGSU HENGRUI MEDICINE CO., LTD.-2067160

PATIENT
  Sex: Male

DRUGS (12)
  1. OXALIPLATIN. [Concomitant]
     Active Substance: OXALIPLATIN
  2. PREDNISONE. [Concomitant]
     Active Substance: PREDNISONE
  3. DEXAMETHASONE. [Concomitant]
     Active Substance: DEXAMETHASONE
  4. KYMRIAH [Concomitant]
     Active Substance: TISAGENLECLEUCEL
  5. CISPLATIN. [Concomitant]
     Active Substance: CISPLATIN
  6. VINCRISTINE [Concomitant]
     Active Substance: VINCRISTINE
  7. GEMCITABINE [Concomitant]
     Active Substance: GEMCITABINE\GEMCITABINE HYDROCHLORIDE
  8. CYCLOPHOSPHAMIDE FOR INJECTION USP, 500 MG, 1 G AND 2 G PER SINGLE-DOS [Suspect]
     Active Substance: CYCLOPHOSPHAMIDE
     Indication: DIFFUSE LARGE B-CELL LYMPHOMA
  9. RITUXIMAB. [Concomitant]
     Active Substance: RITUXIMAB
  10. CYTARABINE. [Concomitant]
     Active Substance: CYTARABINE
  11. DOXORUBICIN [Concomitant]
     Active Substance: DOXORUBICIN
  12. REVLAMID [Concomitant]

REACTIONS (1)
  - Metastasis [Unknown]
